FAERS Safety Report 9941343 (Version 1)
Quarter: 2014Q1

REPORT INFORMATION
  Report Type: Report from Study
  Country: US (occurrence: US)
  Receive Date: 20140303
  Receipt Date: 20140303
  Transmission Date: 20141002
  Serious: No
  Sender: FDA-Public Use
  Company Number: US-ABBVIE-13P-163-1042752-00

PATIENT
  Age: 58 Year
  Sex: Female

DRUGS (1)
  1. HUMIRA [Suspect]
     Indication: ARTHROPATHY
     Route: 058
     Dates: start: 20130128, end: 20130128

REACTIONS (4)
  - Pain [Unknown]
  - Neuralgia [Not Recovered/Not Resolved]
  - Chills [Not Recovered/Not Resolved]
  - Abdominal distension [Unknown]
